FAERS Safety Report 8275223-4 (Version None)
Quarter: 2012Q2

REPORT INFORMATION
  Report Type: 
  Country: None (occurrence: None)
  Receive Date: 20120411
  Receipt Date: 20120405
  Transmission Date: 20120825
  Serious: Yes (Life-Threatening, Other)
  Sender: FDA-Public Use
  Company Number: FR-ELI_LILLY_AND_COMPANY-FR201203001432

PATIENT
  Sex: Female

DRUGS (9)
  1. ALIMTA [Suspect]
     Indication: LUNG ADENOCARCINOMA
     Dosage: UNK
     Route: 042
     Dates: start: 20120209
  2. CISPLATIN [Concomitant]
     Indication: LUNG ADENOCARCINOMA
     Dosage: UNK
  3. FOLIC ACID [Concomitant]
  4. METHYLPREDNISOLONE [Concomitant]
     Dosage: 80 MG, UNK
     Route: 042
     Dates: start: 20120209
  5. SIMVASTATIN [Concomitant]
  6. SODIUM CHLORIDE [Concomitant]
     Dosage: 0.9 %, UNK
     Dates: start: 20120209
  7. MAG 2 [Concomitant]
     Dosage: UNK
     Dates: start: 20120209
  8. EMEND [Concomitant]
     Dosage: 125 MG, UNK
     Dates: start: 20120209
  9. ZOFRAN [Concomitant]
     Dosage: 8 MG, UNK
     Route: 042
     Dates: start: 20120209

REACTIONS (6)
  - DYSPNOEA [None]
  - HYPERSENSITIVITY [None]
  - HEMIPLEGIA [None]
  - HYPOTENSION [None]
  - CEREBROVASCULAR ACCIDENT [None]
  - AGITATION [None]
